FAERS Safety Report 5254603-5 (Version None)
Quarter: 2007Q1

REPORT INFORMATION
  Report Type: 
  Country: None (occurrence: None)
  Receive Date: 20070302
  Receipt Date: 20070219
  Transmission Date: 20070707
  Serious: Yes (Other)
  Sender: FDA-Public Use
  Company Number: US-PFIZER INC-2007014083

PATIENT
  Age: 41 Year
  Sex: Female
  Weight: 106.6 kg

DRUGS (6)
  1. CHANTIX [Suspect]
     Indication: EX-SMOKER
  2. XANAX [Concomitant]
  3. VITAMIN B-12 [Concomitant]
  4. OMEGA 3 [Concomitant]
  5. ALL OTHER THERAPEUTIC PRODUCTS [Concomitant]
  6. PROPOLIS [Concomitant]

REACTIONS (2)
  - AGGRESSION [None]
  - HOMICIDAL IDEATION [None]
